FAERS Safety Report 23751142 (Version 2)
Quarter: 2024Q3

REPORT INFORMATION
  Report Type: Spontaneous
  Country: GB (occurrence: GB)
  Receive Date: 20240417
  Receipt Date: 20240725
  Transmission Date: 20241017
  Serious: Yes (Other)
  Sender: Unknown Manufacturer
  Company Number: GB-MLMSERVICE-20240402-PI004734-00190-1

PATIENT
  Sex: Male

DRUGS (18)
  1. LEVETIRACETAM [Suspect]
     Active Substance: LEVETIRACETAM
     Indication: Epilepsy
     Dosage: BETWEEN DAY 5 AND 6
  2. LEVETIRACETAM [Suspect]
     Active Substance: LEVETIRACETAM
     Dosage: BETWEEN DAY 2 AND 3
  3. LEVETIRACETAM [Suspect]
     Active Substance: LEVETIRACETAM
     Dosage: REDUCED DOSE; ON DAY 0
  4. LEVETIRACETAM [Suspect]
     Active Substance: LEVETIRACETAM
     Dosage: DAY 1 FROM PRESENTATION
  5. LEVETIRACETAM [Suspect]
     Active Substance: LEVETIRACETAM
  6. LEVETIRACETAM [Suspect]
     Active Substance: LEVETIRACETAM
     Dosage: 1000 MG, 1X/DAY (BETWEEN DAY 13 AND 14)
  7. LEVETIRACETAM [Suspect]
     Active Substance: LEVETIRACETAM
     Dosage: 250 MG, 1X/DAY (BETWEEN DAY 14 AND 15)
  8. LEVETIRACETAM [Suspect]
     Active Substance: LEVETIRACETAM
     Dosage: 125 MG, 1X/DAY (BETWEEN DAY 16 AND 17)
  9. LEVETIRACETAM [Suspect]
     Active Substance: LEVETIRACETAM
     Dosage: 1000 MG, 1X/DAY (BETWEEN DAY 18 AND 19)
  10. LAMOTRIGINE [Suspect]
     Active Substance: LAMOTRIGINE
     Indication: Epilepsy
     Dosage: BETWEEN DAY 5 AND 6
  11. LAMOTRIGINE [Suspect]
     Active Substance: LAMOTRIGINE
     Dosage: DAY 0 FROM PRESENTATION
  12. LAMOTRIGINE [Suspect]
     Active Substance: LAMOTRIGINE
     Dosage: 5 YR 3MONTHS
  13. LAMOTRIGINE [Suspect]
     Active Substance: LAMOTRIGINE
     Dosage: BETWEEN DAY 2 AND 3
  14. LAMOTRIGINE [Suspect]
     Active Substance: LAMOTRIGINE
     Dosage: 75 MG, 1X/DAY (BETWEEN DAY 13 AND 14)
  15. LAMOTRIGINE [Suspect]
     Active Substance: LAMOTRIGINE
     Dosage: DAY 1 FROM PRESENTATION
  16. LAMOTRIGINE [Suspect]
     Active Substance: LAMOTRIGINE
     Dosage: 150 MG, 1X/DAY (BETWEEN DAY 14 AND 15)
  17. LAMOTRIGINE [Suspect]
     Active Substance: LAMOTRIGINE
     Dosage: 150 MG, 1X/DAY (BETWEEN DAY 16 AND 17)
  18. LAMOTRIGINE [Suspect]
     Active Substance: LAMOTRIGINE
     Dosage: 150 MG, 1X/DAY (BETWEEN DAY 17 AND 18)

REACTIONS (1)
  - Toxic optic neuropathy [Recovered/Resolved]
